FAERS Safety Report 20232750 (Version 1)
Quarter: 2021Q4

REPORT INFORMATION
  Report Type: Spontaneous
  Country: US (occurrence: None)
  Receive Date: 20211223
  Receipt Date: 20211223
  Transmission Date: 20220303
  Serious: Yes (Other)
  Sender: FDA-Public Use
  Company Number: None

PATIENT
  Age: 48 Year
  Sex: Male
  Weight: 94.8 kg

DRUGS (1)
  1. ARIPIPRAZOLE [Suspect]
     Active Substance: ARIPIPRAZOLE
     Indication: Schizophrenia
     Dosage: FREQUENCY : DAILY; 1 EVERY AM?
     Route: 048
     Dates: start: 201509

REACTIONS (3)
  - Nausea [None]
  - Rash papular [None]
  - Rash erythematous [None]

NARRATIVE: CASE EVENT DATE: 20150918
